FAERS Safety Report 10570680 (Version 1)
Quarter: 2014Q4

REPORT INFORMATION
  Report Type: Spontaneous
  Country: TR (occurrence: TR)
  Receive Date: 20141107
  Receipt Date: 20141107
  Transmission Date: 20150529
  Serious: Yes (Hospitalization)
  Sender: FDA-Public Use
  Company Number: TR-009507513-1411TUR002117

PATIENT
  Age: 54 Year
  Sex: Female

DRUGS (10)
  1. REMERON [Suspect]
     Active Substance: MIRTAZAPINE
     Indication: INSOMNIA
  2. CO-DIOVAN [Concomitant]
     Active Substance: HYDROCHLOROTHIAZIDE\VALSARTAN
     Indication: HYPERTENSION
     Dosage: 160/12.5 MG, QD
     Dates: start: 20140712, end: 20140930
  3. INLYTA [Suspect]
     Active Substance: AXITINIB
     Dosage: 5 MG, BID
     Route: 048
     Dates: start: 20140825, end: 20140831
  4. EUTHYROX [Concomitant]
     Active Substance: LEVOTHYROXINE SODIUM
     Dosage: 50 MG, QAM, WITH EMPTY STOMACH
  5. INLYTA [Suspect]
     Active Substance: AXITINIB
     Dosage: 5 MG, QD
     Route: 048
     Dates: start: 20140917, end: 20140930
  6. REMERON [Suspect]
     Active Substance: MIRTAZAPINE
     Indication: ALTERED STATE OF CONSCIOUSNESS
     Dosage: 30 MG, QD
     Route: 048
     Dates: start: 201306, end: 20140808
  7. LANSOR [Concomitant]
     Active Substance: LANSOPRAZOLE
     Dosage: 30 MG, QAM, WITH EMPTY STOMACH
  8. DILTIAZEM HYDROCHLORIDE. [Concomitant]
     Active Substance: DILTIAZEM HYDROCHLORIDE
     Dosage: 90 MG, QAM, WITH FULL STOMACH
  9. INLYTA [Suspect]
     Active Substance: AXITINIB
     Indication: METASTATIC RENAL CELL CARCINOMA
     Dosage: 5 MG, BID
     Route: 048
     Dates: start: 20140712, end: 20140730
  10. NORODOL [Concomitant]
     Dosage: TWICE DAILY 7 DROPS, AT MORNINGS WITH FULL STOMACH

REACTIONS (5)
  - Blood sodium decreased [Not Recovered/Not Resolved]
  - Contusion [Recovered/Resolved]
  - Oral discomfort [Recovered/Resolved]
  - Strabismus [Recovered/Resolved]
  - Blood pressure increased [Unknown]

NARRATIVE: CASE EVENT DATE: 201407
